FAERS Safety Report 5277139-4 (Version None)
Quarter: 2007Q1

REPORT INFORMATION
  Report Type: 
  Country: None (occurrence: None)
  Receive Date: 20070322
  Receipt Date: 20070322
  Transmission Date: 20070707
  Serious: Yes (Other)
  Sender: FDA-Public Use
  Company Number: None

PATIENT
  Age: 38 Year
  Sex: Female
  Weight: 79.3795 kg

DRUGS (1)
  1. ZOLOFT [Suspect]
     Indication: DEPRESSION
     Dosage: 1 TABLET ONCE DAILY PO
     Route: 048
     Dates: start: 20050104, end: 20070301

REACTIONS (6)
  - ABDOMINAL DISCOMFORT [None]
  - AGGRESSION [None]
  - AGITATION [None]
  - DRUG WITHDRAWAL SYNDROME [None]
  - INSOMNIA [None]
  - PARAESTHESIA [None]
